FAERS Safety Report 4480114-0 (Version None)
Quarter: 2004Q3

REPORT INFORMATION
  Report Type: 
  Country: None (occurrence: None)
  Receive Date: 20040923
  Receipt Date: 20040611
  Transmission Date: 20050211
  Serious: No
  Sender: FDA-Public Use
  Company Number: USA040669392

PATIENT
  Sex: Female

DRUGS (1)
  1. FORTEO [Suspect]
     Dosage: 20 UG/1 DAY

REACTIONS (4)
  - ABDOMINAL PAIN [None]
  - GASTRITIS [None]
  - HEADACHE [None]
  - TREMOR [None]
